FAERS Safety Report 8900613 (Version 2)
Quarter: 2013Q1

REPORT INFORMATION
  Report Type: Spontaneous
  Country: US (occurrence: US)
  Receive Date: 20121109
  Receipt Date: 20130227
  Transmission Date: 20140127
  Serious: No
  Sender: FDA-Public Use
  Company Number: US-009507513-1211USA001083

PATIENT
  Sex: Female

DRUGS (1)
  1. SINGULAIR [Suspect]
     Route: 048

REACTIONS (4)
  - Abnormal behaviour [Recovering/Resolving]
  - Feeling hot [Recovering/Resolving]
  - Somnolence [Recovering/Resolving]
  - Product quality issue [Unknown]
